FAERS Safety Report 15644297 (Version 1)
Quarter: 2018Q4

REPORT INFORMATION
  Report Type: Spontaneous
  Country: US (occurrence: US)
  Receive Date: 20181121
  Receipt Date: 20181121
  Transmission Date: 20190205
  Serious: Yes (Disabling)
  Sender: FDA-Public Use
  Company Number: None

PATIENT
  Age: 47 Year
  Sex: Male
  Weight: 90 kg

DRUGS (2)
  1. MAGNEVIST [Suspect]
     Active Substance: GADOPENTETATE DIMEGLUMINE
     Indication: NUCLEAR MAGNETIC RESONANCE IMAGING
     Route: 042
     Dates: start: 20180302
  2. TRIAMCINOLONE ACETONIDE. [Concomitant]
     Active Substance: TRIAMCINOLONE ACETONIDE

REACTIONS (21)
  - Speech disorder [None]
  - Abdominal pain [None]
  - Poisoning [None]
  - Dermatitis atopic [None]
  - Amnesia [None]
  - Tinnitus [None]
  - Visual impairment [None]
  - Dry skin [None]
  - Pruritus [None]
  - Loss of consciousness [None]
  - Infection prophylaxis [None]
  - Confusional state [None]
  - Pain of skin [None]
  - Malaise [None]
  - Nausea [None]
  - Fatigue [None]
  - Muscular weakness [None]
  - Tremor [None]
  - Neuropathy peripheral [None]
  - Dizziness [None]
  - Abdominal distension [None]

NARRATIVE: CASE EVENT DATE: 20180302
